FAERS Safety Report 10265342 (Version 2)
Quarter: 2014Q3

REPORT INFORMATION
  Report Type: Spontaneous
  Country: CH (occurrence: None)
  Receive Date: 20140624
  Receipt Date: 20140709
  Transmission Date: 20150326
  Serious: Yes (Hospitalization)
  Sender: FDA-Public Use
  Company Number: 20140284

PATIENT
  Age: 31 Year
  Sex: Female

DRUGS (6)
  1. VENOFER [Suspect]
     Active Substance: IRON SUCROSE
     Indication: IRON DEFICIENCY ANAEMIA
     Dosage: NACL 0.9 IN 3HRS
     Route: 041
     Dates: start: 20140211, end: 20140211
  2. METRONIDAZOLE. [Concomitant]
     Active Substance: METRONIDAZOLE
  3. ESOMEPRAZOLE [Concomitant]
     Active Substance: ESOMEPRAZOLE
  4. COLECALCIFEROL [Concomitant]
     Active Substance: CHOLECALCIFEROL
  5. ELEVIT ERGPCALCIFEROL, MULTIVITAMIN) [Concomitant]
  6. AMOXICILLIN. [Concomitant]
     Active Substance: AMOXICILLIN

REACTIONS (12)
  - Nausea [None]
  - Oedema [None]
  - Pain in extremity [None]
  - Peripheral swelling [None]
  - Vomiting [None]
  - Joint swelling [None]
  - Caesarean section [None]
  - Off label use [None]
  - Incorrect drug administration rate [None]
  - Dyspnoea [None]
  - Maternal exposure during pregnancy [None]
  - Foetal hypokinesia [None]

NARRATIVE: CASE EVENT DATE: 20140211
